FAERS Safety Report 7903448-3 (Version None)
Quarter: 2011Q4

REPORT INFORMATION
  Report Type: 
  Country: None (occurrence: None)
  Receive Date: 20111109
  Receipt Date: 20111031
  Transmission Date: 20120403
  Serious: Yes (Hospitalization)
  Sender: FDA-Public Use
  Company Number: JP-JNJFOC-20111100761

PATIENT
  Age: 74 Year
  Sex: Male

DRUGS (8)
  1. LAMIVUDINE ABACAVIR SULFATE [Suspect]
     Indication: HIV INFECTION
     Route: 048
     Dates: start: 20091125
  2. PREZISTA [Suspect]
     Route: 048
     Dates: start: 20090917, end: 20091018
  3. RALTEGRAVIR [Concomitant]
     Indication: HIV INFECTION
     Route: 048
     Dates: start: 20090917, end: 20091018
  4. RITONAVIR [Concomitant]
     Route: 048
     Dates: start: 20090917, end: 20091018
  5. VALSARTAN [Concomitant]
     Indication: HYPERTENSION
     Route: 048
     Dates: start: 20100401
  6. TEGAFUR URACIL [Concomitant]
     Indication: GASTRIC CANCER
     Route: 048
     Dates: start: 20100401, end: 20101021
  7. RITONAVIR [Suspect]
     Indication: HIV INFECTION
     Route: 048
     Dates: start: 20100401
  8. PREZISTA [Suspect]
     Indication: HIV INFECTION
     Route: 048
     Dates: start: 20091125

REACTIONS (2)
  - AORTIC ANEURYSM [None]
  - ILIAC ARTERY STENOSIS [None]
